FAERS Safety Report 8915556 (Version 1)
Quarter: 2012Q4

REPORT INFORMATION
  Report Type: 
  Country: US (occurrence: US)
  Receive Date: 20121119
  Receipt Date: 20121119
  Transmission Date: 20130627
  Serious: Yes (Other)
  Sender: FDA-Public Use
  Company Number: US-PURDUE-GBR-2012-0012093

PATIENT
  Age: 40 Year
  Sex: Male

DRUGS (1)
  1. MORPHINE SULFATE [Suspect]
     Indication: PAIN
     Dosage: UNK
     Route: 037
     Dates: start: 1995, end: 2007

REACTIONS (3)
  - Gynaecomastia [Unknown]
  - Hypopituitarism [Unknown]
  - Fatigue [Unknown]
